FAERS Safety Report 8953935 (Version 1)
Quarter: 2012Q4

REPORT INFORMATION
  Report Type: 
  Country: ES (occurrence: ES)
  Receive Date: 20121206
  Receipt Date: 20121206
  Transmission Date: 20130627
  Serious: Yes (Other)
  Sender: FDA-Public Use
  Company Number: ES-B.I. PHARMACEUTICALS,INC./RIDGEFIELD-2012-ES-00483ES

PATIENT
  Age: 68 Year
  Sex: Male

DRUGS (4)
  1. PRADAXA [Suspect]
     Indication: ATRIAL FIBRILLATION
     Dosage: 300 mg
     Route: 048
     Dates: start: 20111021, end: 20120110
  2. SIMVASTATINA [Suspect]
     Indication: DYSLIPIDAEMIA
     Dosage: 20 mg
     Route: 048
     Dates: start: 2011
  3. EMCONCOR [Suspect]
     Indication: HYPERTENSION
     Dosage: 2.5 mg
     Route: 048
     Dates: start: 2011
  4. OLMESARTAN MEDOXOMIL [Suspect]
     Indication: HYPERTENSION
     Dosage: 20 mg
     Route: 048
     Dates: start: 2011

REACTIONS (1)
  - Headache [Recovered/Resolved]
